FAERS Safety Report 15868089 (Version 1)
Quarter: 2019Q1

REPORT INFORMATION
  Report Type: Spontaneous
  Country: HR (occurrence: HR)
  Receive Date: 20190125
  Receipt Date: 20190125
  Transmission Date: 20190417
  Serious: Yes (Other)
  Sender: FDA-Public Use
  Company Number: IND-HR-009507513-1901HRV005649

PATIENT
  Age: 25 Year
  Sex: Female
  Weight: 75 kg

DRUGS (3)
  1. ESMERON [Suspect]
     Active Substance: ROCURONIUM BROMIDE
     Indication: ANAESTHESIA
     Dosage: 50 MILLIGRAM, DAY, FORMULATION: VIALS
     Route: 042
     Dates: start: 20181217, end: 20181217
  2. PROPOFOL FRESENIUS [Concomitant]
     Active Substance: PROPOFOL
     Indication: ANAESTHESIA
     Dosage: 150 MILLIGRAM, DAY, FORMULATION:VIALS
     Route: 042
     Dates: start: 20181217, end: 20181217
  3. SUFENTANIL [Concomitant]
     Active Substance: SUFENTANIL
     Indication: ANAESTHESIA
     Dosage: 5 MILLILITER, DAY
     Route: 042
     Dates: start: 20181217, end: 20181217

REACTIONS (6)
  - Tachycardia [Recovering/Resolving]
  - Oxygen saturation decreased [Recovering/Resolving]
  - Anaphylactic reaction [Recovering/Resolving]
  - Blood pressure systolic decreased [Recovering/Resolving]
  - Hypersensitivity [Recovering/Resolving]
  - End-tidal CO2 decreased [Recovering/Resolving]

NARRATIVE: CASE EVENT DATE: 20181217
